FAERS Safety Report 5459924-9 (Version None)
Quarter: 2007Q3

REPORT INFORMATION
  Report Type: 
  Country: None (occurrence: None)
  Receive Date: 20070919
  Receipt Date: 20070502
  Transmission Date: 20080115
  Serious: No
  Sender: FDA-Public Use
  Company Number: US-ASTRAZENECA-2007UW09344

PATIENT
  Age: 58 Year
  Sex: Male

DRUGS (5)
  1. SEROQUEL [Suspect]
     Indication: SLEEP DISORDER
     Dosage: 1-2 HOURS BEFORE BED
     Route: 048
     Dates: start: 20070401
  2. TOPROL-XL [Concomitant]
  3. CRESTOR [Concomitant]
  4. ASPIRIN [Concomitant]
  5. NEXIUM [Concomitant]

REACTIONS (4)
  - DISCOMFORT [None]
  - FORMICATION [None]
  - PRURITUS [None]
  - WEIGHT INCREASED [None]
